FAERS Safety Report 9871308 (Version 1)
Quarter: 2014Q1

REPORT INFORMATION
  Report Type: Spontaneous
  Country: US (occurrence: US)
  Receive Date: 20140205
  Receipt Date: 20140205
  Transmission Date: 20141002
  Serious: Yes (Other)
  Sender: FDA-Public Use
  Company Number: US-TEVA-460799USA

PATIENT
  Age: 89 Year
  Sex: Female
  Weight: 39 kg

DRUGS (4)
  1. FEXOFENADINE [Suspect]
     Indication: RHINORRHOEA
     Dosage: 60 MILLIGRAM DAILY;
     Route: 048
     Dates: start: 20110413, end: 201311
  2. FEXOFENADINE [Suspect]
     Indication: PRURITUS GENERALISED
  3. PROAIR [Concomitant]
  4. SINGULAIR [Concomitant]

REACTIONS (10)
  - Psychotic disorder [Not Recovered/Not Resolved]
  - Hallucination [Not Recovered/Not Resolved]
  - Thinking abnormal [Not Recovered/Not Resolved]
  - Off label use [Unknown]
  - Drug ineffective [Unknown]
  - Fatigue [Not Recovered/Not Resolved]
  - Drug administration error [Unknown]
  - Drug administered to patient of inappropriate age [Unknown]
  - Underdose [Unknown]
  - Therapeutic response unexpected [Unknown]
